FAERS Safety Report 5310832-3 (Version None)
Quarter: 2007Q2

REPORT INFORMATION
  Report Type: 
  Country: None (occurrence: None)
  Receive Date: 20070428
  Receipt Date: 20070419
  Transmission Date: 20071010
  Serious: Yes (Hospitalization, Congenital Anomaly)
  Sender: FDA-Public Use
  Company Number: CA-PFIZER INC-2006073658

PATIENT
  Sex: Male

DRUGS (2)
  1. ZOLOFT [Suspect]
     Dosage: DAILY DOSE:100MG
     Dates: start: 20060501, end: 20060524
  2. DICLECTIN [Concomitant]
     Dosage: TEXT:1-2 TABLETS HS

REACTIONS (3)
  - CONGENITAL ABSENCE OF BILE DUCTS [None]
  - DRUG EXPOSURE DURING PREGNANCY [None]
  - NAUSEA [None]
